FAERS Safety Report 4273062-2 (Version None)
Quarter: 2004Q1

REPORT INFORMATION
  Report Type: 
  Country: None (occurrence: None)
  Receive Date: 20040114
  Receipt Date: 20040106
  Transmission Date: 20041129
  Serious: Yes (Hospitalization)
  Sender: FDA-Public Use
  Company Number: GBWYE499008JAN04

PATIENT
  Age: 73 Year
  Sex: Male

DRUGS (3)
  1. ADVIL [Suspect]
     Indication: PAIN
     Dosage: 400 MG 3 X PER 1 DAY
     Route: 048
     Dates: end: 20031205
  2. TRAMADOL (TRAMADOL) [Concomitant]
  3. EFFEXOR [Concomitant]

REACTIONS (4)
  - DUODENAL ULCER [None]
  - HAEMATEMESIS [None]
  - HAEMOGLOBIN DECREASED [None]
  - HIATUS HERNIA [None]
